FAERS Safety Report 6526374-3 (Version None)
Quarter: 2009Q4

REPORT INFORMATION
  Report Type: 
  Country: None (occurrence: None)
  Receive Date: 20091229
  Receipt Date: 20091214
  Transmission Date: 20100525
  Serious: Yes (Other)
  Sender: FDA-Public Use
  Company Number: 2009MB000078

PATIENT
  Age: 21 Year
  Sex: Female

DRUGS (1)
  1. CEPHALEXIN [Suspect]
     Indication: MAMMOPLASTY
     Dosage: 500 MG; QID

REACTIONS (5)
  - ABDOMINAL PAIN [None]
  - CHROMATURIA [None]
  - IDIOSYNCRATIC DRUG REACTION [None]
  - LIVER INJURY [None]
  - MYALGIA [None]
